FAERS Safety Report 4390627-8 (Version None)
Quarter: 2004Q2

REPORT INFORMATION
  Report Type: 
  Country: None (occurrence: None)
  Receive Date: 20040630
  Receipt Date: 20040615
  Transmission Date: 20050107
  Serious: Yes (Other)
  Sender: FDA-Public Use
  Company Number: 2004-06-1480

PATIENT
  Age: 14 Year
  Sex: Female

DRUGS (1)
  1. CLARITIN-D 24 HOUR [Suspect]
     Indication: SNEEZING
     Dosage: 1 TAB QD ORAL
     Route: 048
     Dates: start: 20040613

REACTIONS (1)
  - SYNCOPE [None]
